FAERS Safety Report 4675922-7 (Version None)
Quarter: 2005Q2

REPORT INFORMATION
  Report Type: 
  Country: None (occurrence: None)
  Receive Date: 20050527
  Receipt Date: 20050308
  Transmission Date: 20051028
  Serious: No
  Sender: FDA-Public Use
  Company Number: US-GLAXOSMITHKLINE-A0548839A

PATIENT
  Sex: Male

DRUGS (7)
  1. WELLBUTRIN XL [Suspect]
     Indication: ILL-DEFINED DISORDER
     Dosage: 300MG PER DAY
     Route: 048
  2. LEXAPRO [Concomitant]
  3. VITAMIN [Concomitant]
  4. GREEN TEA [Concomitant]
  5. SAW PALMETTO [Concomitant]
  6. VITAMIN E [Concomitant]
  7. GARLIC [Concomitant]

REACTIONS (2)
  - INSOMNIA [None]
  - RESTLESSNESS [None]
